FAERS Safety Report 7394768-2 (Version None)
Quarter: 2011Q2

REPORT INFORMATION
  Report Type: 
  Country: None (occurrence: None)
  Receive Date: 20110405
  Receipt Date: 20110401
  Transmission Date: 20111010
  Serious: Yes (Hospitalization, Other)
  Sender: FDA-Public Use
  Company Number: DE-PFIZER INC-2010088119

PATIENT
  Age: 84 Year
  Sex: Female
  Weight: 72 kg

DRUGS (9)
  1. PANTOZOL [Interacting]
     Indication: PROPHYLAXIS AGAINST GASTROINTESTINAL ULCER
     Dosage: 40 MG, 1X/DAY
     Route: 048
  2. METOPROLOL [Concomitant]
     Indication: HYPERTENSION
     Dosage: 47.5 MG, 1X/DAY
     Route: 048
  3. ACETYLSALICYLIC ACID [Concomitant]
     Indication: ISCHAEMIC HEART DISEASE PROPHYLAXIS
     Dosage: 100 MG, 1X/DAY
     Route: 048
     Dates: start: 20091101
  4. UNACID [Suspect]
     Indication: URINARY TRACT INFECTION
     Dosage: 1.5 G, 2X/DAY
     Route: 042
     Dates: start: 20091129, end: 20091130
  5. CLARITHROMYCIN [Interacting]
     Indication: HELICOBACTER INFECTION
     Dosage: 500 MG, 2X/DAY
     Route: 048
     Dates: start: 20091221, end: 20091227
  6. RAMIPRIL [Concomitant]
     Indication: HYPERTENSION
     Dosage: 2.5 MG, 1X/DAY
  7. TAVANIC [Interacting]
     Indication: URINARY TRACT INFECTION
     Dosage: 250 MG, 1X/DAY
     Route: 048
     Dates: start: 20091130, end: 20091208
  8. METRONIDAZOLE [Concomitant]
     Indication: HELICOBACTER INFECTION
     Dosage: 500 MG, 1X/DAY
     Route: 048
     Dates: start: 20091221, end: 20091227
  9. SIMVASTATIN [Concomitant]
     Indication: ISCHAEMIC HEART DISEASE PROPHYLAXIS
     Dosage: 20 MG, 1X/DAY
     Route: 048

REACTIONS (3)
  - GASTROINTESTINAL HAEMORRHAGE [None]
  - CLOSTRIDIUM DIFFICILE COLITIS [None]
  - DRUG INTERACTION [None]
